FAERS Safety Report 9244636 (Version 2)
Quarter: 2014Q2

REPORT INFORMATION
  Report Type: Spontaneous
  Country: CH (occurrence: CH)
  Receive Date: 20130422
  Receipt Date: 20140408
  Transmission Date: 20141212
  Serious: Yes (Hospitalization)
  Sender: FDA-Public Use
  Company Number: CH-JNJFOC-20130408717

PATIENT
  Age: 91 Year
  Sex: Female
  Weight: 52 kg

DRUGS (6)
  1. XARELTO [Suspect]
     Indication: CEREBROVASCULAR ACCIDENT PROPHYLAXIS
     Route: 048
     Dates: start: 20121120, end: 20121224
  2. XARELTO [Suspect]
     Indication: ATRIAL FLUTTER
     Route: 048
     Dates: start: 20121120, end: 20121224
  3. XARELTO [Suspect]
     Indication: ATRIAL FIBRILLATION
     Route: 048
     Dates: start: 20121120, end: 20121224
  4. TOREM [Concomitant]
     Indication: CARDIAC FAILURE CONGESTIVE
     Route: 065
  5. ADALAT [Concomitant]
     Route: 065
  6. PROGYNOVA [Concomitant]
     Route: 065

REACTIONS (2)
  - Jaundice [Recovered/Resolved]
  - Cholestatic liver injury [Recovered/Resolved]
